FAERS Safety Report 5978658-5 (Version None)
Quarter: 2008Q4

REPORT INFORMATION
  Report Type: 
  Country: None (occurrence: None)
  Receive Date: 20081204
  Receipt Date: 20081126
  Transmission Date: 20090506
  Serious: Yes (Hospitalization)
  Sender: FDA-Public Use
  Company Number: US-ABBOTT-08P-163-0490268-00

PATIENT
  Age: 36 Year
  Sex: Male

DRUGS (3)
  1. DEPAKOTE [Suspect]
     Indication: MIGRAINE
     Route: 048
     Dates: start: 20070101
  2. DEPAKOTE [Suspect]
     Indication: CONVULSION
     Route: 048
     Dates: start: 20081125, end: 20081125
  3. DEPAKOTE [Suspect]
     Route: 048
     Dates: start: 20081125

REACTIONS (4)
  - HOSPITALISATION [None]
  - LETHARGY [None]
  - OXYGEN SATURATION DECREASED [None]
  - SOMNOLENCE [None]
